FAERS Safety Report 8619413-7 (Version None)
Quarter: 2012Q3

REPORT INFORMATION
  Report Type: 
  Country: None (occurrence: None)
  Receive Date: 20120824
  Receipt Date: 20120820
  Transmission Date: 20120928
  Serious: Yes (Death, Other)
  Sender: FDA-Public Use
  Company Number: US-CELGENEUS-163-21880-11110955

PATIENT
  Sex: Male

DRUGS (1)
  1. REVLIMID [Suspect]
     Indication: MULTIPLE MYELOMA
     Dosage: 5 MILLIGRAM
     Route: 048
     Dates: start: 20101206, end: 20120101

REACTIONS (5)
  - NASOPHARYNGITIS [None]
  - HEARING IMPAIRED [None]
  - CORONARY ARTERY DISEASE [None]
  - CONTUSION [None]
  - HAEMORRHAGE [None]
